FAERS Safety Report 9810957 (Version 4)
Quarter: 2015Q3

REPORT INFORMATION
  Report Type: Spontaneous
  Country: US (occurrence: US)
  Receive Date: 20140110
  Receipt Date: 20150727
  Transmission Date: 20151125
  Serious: Yes (Other)
  Sender: FDA-Public Use
  Company Number: US-SANOFI-AVENTIS-2013SA000434

PATIENT
  Age: 50 Year
  Sex: Male

DRUGS (4)
  1. PLAVIX [Suspect]
     Active Substance: CLOPIDOGREL BISULFATE
     Indication: ACUTE CORONARY SYNDROME
     Route: 065
     Dates: start: 20060101, end: 20101210
  2. ASPIRIN. [Concomitant]
     Active Substance: ASPIRIN
     Dates: start: 20060101, end: 20101210
  3. PLAVIX [Suspect]
     Active Substance: CLOPIDOGREL BISULFATE
     Indication: STENT PLACEMENT
     Route: 065
     Dates: start: 20060101, end: 20101210
  4. PLAVIX [Suspect]
     Active Substance: CLOPIDOGREL BISULFATE
     Indication: MYOCARDIAL INFARCTION
     Route: 065
     Dates: start: 20060101, end: 20101210

REACTIONS (5)
  - Retinal haemorrhage [Unknown]
  - Atrioventricular block [Unknown]
  - Multiple injuries [Unknown]
  - Haemorrhage [Unknown]
  - Cardiac failure [Unknown]

NARRATIVE: CASE EVENT DATE: 201001
